FAERS Safety Report 24027401 (Version 2)
Quarter: 2024Q3

REPORT INFORMATION
  Report Type: Spontaneous
  Country: US (occurrence: US)
  Receive Date: 20240628
  Receipt Date: 20240923
  Transmission Date: 20241017
  Serious: Yes (Hospitalization, Other)
  Sender: BRISTOL MYERS SQUIBB
  Company Number: US-BRISTOL-MYERS SQUIBB COMPANY-2024-103457

PATIENT
  Age: 73 Year
  Sex: Male
  Weight: 93.89 kg

DRUGS (1)
  1. REVLIMID [Suspect]
     Active Substance: LENALIDOMIDE
     Indication: Plasma cell myeloma
     Dosage: FREQUENCY: 2W ON 1W OFF/ONCE DAILY FOR 14 DAYS ON THEN 7 DAYS OFF
     Route: 048
     Dates: start: 20240201

REACTIONS (4)
  - Gastrointestinal disorder [Unknown]
  - Off label use [Unknown]
  - Fatigue [Unknown]
  - Asthenia [Unknown]
